FAERS Safety Report 22300481 (Version 2)
Quarter: 2023Q2

REPORT INFORMATION
  Report Type: Spontaneous
  Country: US (occurrence: US)
  Receive Date: 20230509
  Receipt Date: 20230511
  Transmission Date: 20230722
  Serious: Yes (Other)
  Sender: FDA-Public Use
  Company Number: US-APIL-2313853US

PATIENT
  Sex: Female

DRUGS (2)
  1. REFRESH CLASSIC [Suspect]
     Active Substance: POLYVINYL ALCOHOL\POVIDONE
     Indication: Dry eye
     Dosage: UNK UNK, PRN
     Route: 047
  2. REFRESH CLASSIC [Suspect]
     Active Substance: POLYVINYL ALCOHOL\POVIDONE
     Dosage: UNK UNK, PRN
     Route: 047
     Dates: start: 2018

REACTIONS (3)
  - Cataract [Unknown]
  - Foreign body sensation in eyes [Not Recovered/Not Resolved]
  - Product availability issue [Unknown]

NARRATIVE: CASE EVENT DATE: 20200101
